FAERS Safety Report 18388277 (Version 2)
Quarter: 2020Q4

REPORT INFORMATION
  Report Type: Spontaneous
  Country: US (occurrence: US)
  Receive Date: 20201015
  Receipt Date: 20201027
  Transmission Date: 20210114
  Serious: No
  Sender: FDA-Public Use
  Company Number: US-GLAXOSMITHKLINE-US2020AMR200731

PATIENT
  Sex: Female

DRUGS (1)
  1. ZEJULA [Suspect]
     Active Substance: NIRAPARIB
     Indication: OVARIAN CANCER
     Dosage: 200 MG, QD
     Route: 065

REACTIONS (9)
  - Dyspepsia [Not Recovered/Not Resolved]
  - Constipation [Recovering/Resolving]
  - Lethargy [Unknown]
  - Vomiting [Recovering/Resolving]
  - Headache [Recovering/Resolving]
  - Nausea [Recovering/Resolving]
  - Anaemia [Not Recovered/Not Resolved]
  - Fatigue [Recovering/Resolving]
  - Abdominal pain upper [Recovering/Resolving]
